FAERS Safety Report 18256237 (Version 1)
Quarter: 2020Q3

REPORT INFORMATION
  Report Type: Spontaneous
  Country: FR (occurrence: FR)
  Receive Date: 20200911
  Receipt Date: 20200911
  Transmission Date: 20201103
  Serious: Yes (Hospitalization)
  Sender: FDA-Public Use
  Company Number: FR-LEO PHARMA-331440

PATIENT
  Age: 59 Year
  Sex: Female

DRUGS (3)
  1. PROGESTAN [Concomitant]
     Active Substance: PROGESTERONE
     Indication: PRODUCT USED FOR UNKNOWN INDICATION
  2. PICATO [Suspect]
     Active Substance: INGENOL MEBUTATE
     Indication: ACTINIC KERATOSIS
     Route: 003
     Dates: start: 20170228, end: 20170301
  3. ESTREVA (ESTRADIOL THERAMEX) [Concomitant]
     Active Substance: ESTRADIOL
     Indication: PRODUCT USED FOR UNKNOWN INDICATION

REACTIONS (5)
  - Eyelid oedema [Recovered/Resolved]
  - Application site erythema [Recovered/Resolved]
  - Application site burn [Recovered/Resolved]
  - Exfoliative rash [Recovered/Resolved]
  - Application site pustules [Recovered/Resolved]

NARRATIVE: CASE EVENT DATE: 20170301
